FAERS Safety Report 18655052 (Version 3)
Quarter: 2023Q2

REPORT INFORMATION
  Report Type: Spontaneous
  Country: US (occurrence: US)
  Receive Date: 20201223
  Receipt Date: 20230408
  Transmission Date: 20230721
  Serious: Yes (Hospitalization, Other)
  Sender: FDA-Public Use
  Company Number: US-GILEAD-2020-0509302

PATIENT
  Age: 26 Year
  Sex: Male
  Weight: 153 kg

DRUGS (43)
  1. ATRIPLA [Suspect]
     Active Substance: EFAVIRENZ\EMTRICITABINE\TENOFOVIR DISOPROXIL FUMARATE
     Indication: HIV infection
     Dosage: UNK
     Route: 048
     Dates: start: 2010, end: 2012
  2. ATRIPLA [Suspect]
     Active Substance: EFAVIRENZ\EMTRICITABINE\TENOFOVIR DISOPROXIL FUMARATE
     Dosage: UNK
     Route: 048
     Dates: start: 201009, end: 201406
  3. STRIBILD [Suspect]
     Active Substance: COBICISTAT\ELVITEGRAVIR\EMTRICITABINE\TENOFOVIR DISOPROXIL FUMARATE
     Indication: HIV infection
     Dosage: UNK
     Route: 048
     Dates: start: 2010
  4. STRIBILD [Suspect]
     Active Substance: COBICISTAT\ELVITEGRAVIR\EMTRICITABINE\TENOFOVIR DISOPROXIL FUMARATE
     Dosage: UNK
     Route: 048
     Dates: start: 2012, end: 20150715
  5. STRIBILD [Suspect]
     Active Substance: COBICISTAT\ELVITEGRAVIR\EMTRICITABINE\TENOFOVIR DISOPROXIL FUMARATE
     Dosage: UNK
     Route: 048
     Dates: start: 201410, end: 201512
  6. METRONIDAZOLE [Concomitant]
     Active Substance: METRONIDAZOLE
  7. MORPHINE [Concomitant]
     Active Substance: MORPHINE
  8. MYCOPHENOLIC ACID [Concomitant]
     Active Substance: MYCOPHENOLIC ACID
  9. ONDANSETRON [Concomitant]
     Active Substance: ONDANSETRON
  10. SODIUM BICARBONATE [Concomitant]
     Active Substance: SODIUM BICARBONATE
  11. SOLU-MEDROL [Concomitant]
     Active Substance: METHYLPREDNISOLONE SODIUM SUCCINATE
  12. TACROLIMUS [Concomitant]
     Active Substance: TACROLIMUS
  13. TRAMADOL [Concomitant]
     Active Substance: TRAMADOL
  14. VANCOMYCIN [Concomitant]
     Active Substance: VANCOMYCIN
  15. PREDNISONE [Concomitant]
     Active Substance: PREDNISONE
  16. FAMOTIDINE [Concomitant]
     Active Substance: FAMOTIDINE
  17. ASCORBIC ACID\BIOTIN\CALCIUM PANTOTHENATE\CYANOCOBALAMIN\FOLIC ACID\NI [Concomitant]
     Active Substance: ASCORBIC ACID\BIOTIN\CALCIUM PANTOTHENATE\CYANOCOBALAMIN\FOLIC ACID\NIACINAMIDE\PYRIDOXINE HYDROCHLO
  18. CALCIUM ACETATE [Concomitant]
     Active Substance: CALCIUM ACETATE
  19. VELPHORO [Concomitant]
     Active Substance: SUCROFERRIC OXYHYDROXIDE
  20. INSULIN NOS [Concomitant]
     Active Substance: INSULIN NOS
  21. VALGANCICLOVIR HYDROCHLORIDE [Concomitant]
     Active Substance: VALGANCICLOVIR HYDROCHLORIDE
  22. EPIVIR [Concomitant]
     Active Substance: LAMIVUDINE
  23. TIVICAY [Concomitant]
     Active Substance: DOLUTEGRAVIR SODIUM
  24. TRIUMEQ [Concomitant]
     Active Substance: ABACAVIR SULFATE\DOLUTEGRAVIR SODIUM\LAMIVUDINE
  25. ZIAGEN [Concomitant]
     Active Substance: ABACAVIR SULFATE
  26. ORPHENADRINE [Concomitant]
     Active Substance: ORPHENADRINE
  27. PIPERACILLIN AND TAZOBACTAM [Concomitant]
     Active Substance: PIPERACILLIN SODIUM\TAZOBACTAM SODIUM
  28. VITAMIN B AND C COMPLEX [Concomitant]
  29. VITAMIN D NOS [Concomitant]
     Active Substance: VITAMIN D NOS
  30. AMLODIPINE [Concomitant]
     Active Substance: AMLODIPINE BESYLATE
  31. VELPHORO [Concomitant]
     Active Substance: SUCROFERRIC OXYHYDROXIDE
  32. DIETARY SUPPLEMENT [Concomitant]
     Active Substance: DIETARY SUPPLEMENT
  33. LISINOPRIL [Concomitant]
     Active Substance: LISINOPRIL
  34. CINACALCET [Concomitant]
     Active Substance: CINACALCET
  35. ERGOCALCIFEROL [Concomitant]
     Active Substance: ERGOCALCIFEROL
  36. VICODIN [Concomitant]
     Active Substance: ACETAMINOPHEN\HYDROCODONE BITARTRATE
  37. ABACAVIR\LAMIVUDINE [Concomitant]
     Active Substance: ABACAVIR\LAMIVUDINE
  38. ALBUTEROL SULFATE;IPRATROPIUM BROMIDE [Concomitant]
  39. CARVEDILOL [Concomitant]
     Active Substance: CARVEDILOL
  40. COBICISTAT\ELVITEGRAVIR\EMTRICITABINE\TENOFOVIR [Concomitant]
     Active Substance: COBICISTAT\ELVITEGRAVIR\EMTRICITABINE\TENOFOVIR
  41. HYDRALAZINE [Concomitant]
     Active Substance: HYDRALAZINE HYDROCHLORIDE
  42. METOPROLOL [Concomitant]
     Active Substance: METOPROLOL
  43. MIDAZOLAM [Concomitant]
     Active Substance: MIDAZOLAM

REACTIONS (8)
  - End stage renal disease [Unknown]
  - Renal failure [Not Recovered/Not Resolved]
  - Chronic kidney disease-mineral and bone disorder [Not Recovered/Not Resolved]
  - Pain [Unknown]
  - Emotional distress [Unknown]
  - Anxiety [Unknown]
  - Anhedonia [Unknown]
  - Anaemia [Not Recovered/Not Resolved]

NARRATIVE: CASE EVENT DATE: 20140301
